FAERS Safety Report 8035505-8 (Version None)
Quarter: 2012Q1

REPORT INFORMATION
  Report Type: 
  Country: None (occurrence: None)
  Receive Date: 20120110
  Receipt Date: 20120110
  Transmission Date: 20120608
  Serious: Yes (Life-Threatening)
  Sender: FDA-Public Use
  Company Number: None

PATIENT
  Age: 53 Year
  Sex: Male
  Weight: 87.3 kg

DRUGS (2)
  1. VANCOMYCIN [Suspect]
     Indication: PNEUMONIA
     Dates: start: 20111008, end: 20111008
  2. PIPERACILLIN AND TAZOBACTAM [Suspect]
     Indication: PNEUMONIA
     Dates: start: 20111008, end: 20111008

REACTIONS (1)
  - ANAPHYLACTIC REACTION [None]
